FAERS Safety Report 4892231-1 (Version None)
Quarter: 2006Q1

REPORT INFORMATION
  Report Type: 
  Country: None (occurrence: None)
  Receive Date: 20060124
  Receipt Date: 20060113
  Transmission Date: 20060701
  Serious: Yes (Hospitalization)
  Sender: FDA-Public Use
  Company Number: FEI2006-0054

PATIENT
  Sex: Female
  Weight: 3.345 kg

DRUGS (2)
  1. PARAGARD T380A (INTRAUTERINE CONTRACEPTIVES) [Suspect]
  2. PRENATAL VITAMINS (PRENATAL VITAMINS) [Concomitant]

REACTIONS (2)
  - JAUNDICE NEONATAL [None]
  - PREGNANCY WITH CONTRACEPTIVE DEVICE [None]
